FAERS Safety Report 9333308 (Version 1)
Quarter: 2013Q2

REPORT INFORMATION
  Report Type: Spontaneous
  Country: GB (occurrence: GB)
  Receive Date: 20130606
  Receipt Date: 20130606
  Transmission Date: 20140414
  Serious: Yes (Other)
  Sender: FDA-Public Use
  Company Number: GB-TEVA-409538ISR

PATIENT
  Age: 31 Year
  Sex: Male
  Weight: 76.46 kg

DRUGS (1)
  1. MORPHINE [Suspect]
     Dates: start: 20130516

REACTIONS (2)
  - Blister [Recovered/Resolved]
  - Drug hypersensitivity [Unknown]
